FAERS Safety Report 9667786 (Version 2)
Quarter: 2013Q4

REPORT INFORMATION
  Report Type: Report from Study
  Country: US (occurrence: US)
  Receive Date: 20131104
  Receipt Date: 20131104
  Transmission Date: 20140711
  Serious: Yes (Death, Life-Threatening, Hospitalization)
  Sender: FDA-Public Use
  Company Number: US-SA-MOZO-1000766

PATIENT
  Age: 60 Year
  Sex: Female
  Weight: 75 kg

DRUGS (28)
  1. PLERIXAFOR [Suspect]
     Indication: ACUTE MYELOID LEUKAEMIA
     Dosage: 14736 MCG, EVERY OTHER DAY (CYCLE 1)
     Route: 059
     Dates: start: 20120620, end: 20120702
  2. PLERIXAFOR [Suspect]
     Indication: ACUTE MYELOID LEUKAEMIA
     Dosage: 13416 MCG, QOD (CYCLE 2)
     Route: 059
     Dates: start: 20120718, end: 20120730
  3. PLERIXAFOR [Suspect]
     Indication: ACUTE MYELOID LEUKAEMIA
     Dosage: 13150 MCG, QOD (CYCLE 3)
     Route: 059
     Dates: start: 20120816, end: 20120828
  4. PLERIXAFOR [Suspect]
     Indication: ACUTE MYELOID LEUKAEMIA
     Dosage: 13150 MCG, QOD (CYCLE 4)
     Route: 059
     Dates: start: 20120913, end: 20120925
  5. PLERIXAFOR [Suspect]
     Indication: ACUTE MYELOID LEUKAEMIA
     Dosage: 240 MCG/KG, QOD, CYCLE 5 ON DAYS 1,3,5,7,9,11,13
     Route: 059
     Dates: start: 20121011, end: 20121021
  6. FILGRASTIM [Suspect]
     Indication: ACUTE MYELOID LEUKAEMIA
     Dosage: 6000 MCG, QOD (CYCLE 1)
     Route: 059
     Dates: start: 20120620, end: 20120702
  7. FILGRASTIM [Suspect]
     Indication: ACUTE MYELOID LEUKAEMIA
     Dosage: 6000 MCG, QOD (CYCLE 2)
     Route: 059
     Dates: start: 20120718, end: 20120730
  8. FILGRASTIM [Suspect]
     Indication: ACUTE MYELOID LEUKAEMIA
     Dosage: 600 MCG, QOD (CYCLE 3)
     Route: 059
     Dates: start: 20120816, end: 20120828
  9. FILGRASTIM [Suspect]
     Indication: ACUTE MYELOID LEUKAEMIA
     Dosage: 600 MCG, QOD (CYCLE 4)
     Route: 059
     Dates: start: 20120913, end: 20120925
  10. FILGRASTIM [Suspect]
     Indication: ACUTE MYELOID LEUKAEMIA
     Dosage: 10 MCG/KG, QOD, CYCLE 5 ON DAYS 1,3,5,7,9,11,13
     Route: 059
     Dates: start: 20121011, end: 20121021
  11. SORAFENIB [Suspect]
     Indication: ACUTE MYELOID LEUKAEMIA
     Dosage: 800 MG, QD (CYCLE 1)
     Route: 065
     Dates: start: 20120620, end: 20120717
  12. SORAFENIB [Suspect]
     Indication: ACUTE MYELOID LEUKAEMIA
     Dosage: 800 MG, QD (CYCLE 2)
     Route: 065
     Dates: start: 20120718, end: 20120722
  13. SORAFENIB [Suspect]
     Indication: ACUTE MYELOID LEUKAEMIA
     Dosage: 600 MG, BID (CYCLE 2)
     Route: 065
     Dates: start: 20120726, end: 20120803
  14. SORAFENIB [Suspect]
     Indication: ACUTE MYELOID LEUKAEMIA
     Dosage: 600 MG, BID (CYCLE 3) ON DAYS 1-28
     Route: 065
     Dates: start: 20120816, end: 20120912
  15. SORAFENIB [Suspect]
     Indication: ACUTE MYELOID LEUKAEMIA
     Dosage: 400 MG, BID (CYCLE 3) ON DAYS 1-9
     Route: 065
     Dates: start: 20120913, end: 20120921
  16. SORAFENIB [Suspect]
     Indication: ACUTE MYELOID LEUKAEMIA
     Dosage: 600 MG, BID STARTING WITH PM DOSE AND CONTINUED TO DAY 28
     Route: 065
     Dates: start: 20120921
  17. SORAFENIB [Suspect]
     Indication: ACUTE MYELOID LEUKAEMIA
     Dosage: 600 MG, BID, CYCLE 5 ON DAYS1-28
     Route: 048
     Dates: start: 20121011, end: 20121016
  18. SORAFENIB [Suspect]
     Indication: ACUTE MYELOID LEUKAEMIA
     Dosage: 800 MG, BID, CYCLE 5 ON DAYS 1-28
     Route: 048
     Dates: start: 20121017, end: 20121023
  19. LINEZOLID [Concomitant]
     Indication: PRODUCT USED FOR UNKNOWN INDICATION
     Dosage: UNK
  20. ARTIFICIAL TEARS [Concomitant]
     Indication: PRODUCT USED FOR UNKNOWN INDICATION
     Dosage: UNK
  21. HYDROMORPHONE [Concomitant]
     Indication: PRODUCT USED FOR UNKNOWN INDICATION
     Dosage: UNK
  22. MICAFUNGIN [Concomitant]
     Indication: PRODUCT USED FOR UNKNOWN INDICATION
     Dosage: UNK
  23. PANTOPRAZOLE [Concomitant]
     Indication: PRODUCT USED FOR UNKNOWN INDICATION
     Dosage: UNK
  24. PHYTONADIONE [Concomitant]
     Indication: PRODUCT USED FOR UNKNOWN INDICATION
     Dosage: UNK
  25. PIPERACILLIN W/TAZOBACTAM [Concomitant]
     Indication: PRODUCT USED FOR UNKNOWN INDICATION
     Dosage: UNK
  26. TACROLIMUS [Concomitant]
     Indication: PRODUCT USED FOR UNKNOWN INDICATION
     Dosage: UNK
  27. URSODIOL [Concomitant]
     Indication: PRODUCT USED FOR UNKNOWN INDICATION
     Dosage: UNK
  28. VALACICLOVIR [Concomitant]
     Indication: PRODUCT USED FOR UNKNOWN INDICATION
     Dosage: UNK

REACTIONS (6)
  - Acute myeloid leukaemia [Fatal]
  - Hepatic failure [Unknown]
  - Septic shock [Fatal]
  - Acute respiratory failure [Recovered/Resolved]
  - Pneumonia [Not Recovered/Not Resolved]
  - Hypotension [Recovered/Resolved]
